FAERS Safety Report 4964337-X (Version None)
Quarter: 2006Q2

REPORT INFORMATION
  Report Type: 
  Country: None (occurrence: None)
  Receive Date: 20060406
  Receipt Date: 20060329
  Transmission Date: 20061013
  Serious: Yes (Death, Hospitalization, Other)
  Sender: FDA-Public Use
  Company Number: US-JNJFOC-20060307555

PATIENT
  Age: 60 Year
  Sex: Male

DRUGS (1)
  1. CLADRIBINE [Suspect]
     Route: 042

REACTIONS (11)
  - CHROMOSOMAL DELETION [None]
  - DIVERTICULAR PERFORATION [None]
  - FUNGAL INFECTION [None]
  - HERPES ZOSTER [None]
  - OPERATIVE HAEMORRHAGE [None]
  - PANCYTOPENIA [None]
  - PEMPHIGUS [None]
  - PSEUDOMONAS INFECTION [None]
  - STAPHYLOCOCCAL IMPETIGO [None]
  - STAPHYLOCOCCAL INFECTION [None]
  - WARM TYPE HAEMOLYTIC ANAEMIA [None]
